FAERS Safety Report 7007607-6 (Version None)
Quarter: 2010Q3

REPORT INFORMATION
  Report Type: 
  Country: None (occurrence: None)
  Receive Date: 20100922
  Receipt Date: 20100914
  Transmission Date: 20110219
  Serious: Yes (Hospitalization)
  Sender: FDA-Public Use
  Company Number: NL-AMGEN-QUU432035

PATIENT
  Sex: Female
  Weight: 85 kg

DRUGS (8)
  1. NEULASTA [Suspect]
     Indication: CHEMOTHERAPY
     Route: 058
     Dates: start: 20100727, end: 20100907
  2. TAXOTERE [Concomitant]
     Route: 042
  3. NEXIUM [Concomitant]
     Route: 048
  4. ATENOLOL [Concomitant]
     Route: 048
  5. EFFEXOR [Concomitant]
     Route: 048
  6. LOPID [Concomitant]
  7. DYTENZIDE [Concomitant]
     Route: 048
  8. CYCLOPHOSPHAMIDE [Concomitant]

REACTIONS (7)
  - ASTHENIA [None]
  - FATIGUE [None]
  - FEELING ABNORMAL [None]
  - MALAISE [None]
  - NEUTROPENIA [None]
  - PYREXIA [None]
  - WHITE BLOOD CELL COUNT DECREASED [None]
